FAERS Safety Report 6676776-X (Version None)
Quarter: 2010Q2

REPORT INFORMATION
  Report Type: 
  Country: None (occurrence: None)
  Receive Date: 20100409
  Receipt Date: 20100409
  Transmission Date: 20101027
  Serious: Yes (Disabling)
  Sender: FDA-Public Use
  Company Number: None

PATIENT
  Sex: Female
  Weight: 104.3273 kg

DRUGS (2)
  1. LEVAQUIN [Suspect]
     Indication: BRONCHITIS
     Dosage: 500MG 1X DAILY
     Dates: start: 20100313, end: 20100316
  2. PREDNISONE [Suspect]
     Indication: BRONCHITIS
     Dosage: PREDNISONE
     Dates: start: 20100312, end: 20100323

REACTIONS (3)
  - ARTHRALGIA [None]
  - GAIT DISTURBANCE [None]
  - IMPAIRED WORK ABILITY [None]
